FAERS Safety Report 5311440-0 (Version None)
Quarter: 2007Q2

REPORT INFORMATION
  Report Type: 
  Country: None (occurrence: None)
  Receive Date: 20070426
  Receipt Date: 20070426
  Transmission Date: 20071010
  Serious: Yes (Hospitalization)
  Sender: FDA-Public Use
  Company Number: None

PATIENT
  Age: 79 Year
  Sex: Male

DRUGS (1)
  1. WARFARIN [Suspect]
     Dates: start: 20061028

REACTIONS (5)
  - ANAEMIA [None]
  - BALANCE DISORDER [None]
  - DIZZINESS [None]
  - HYPOTENSION [None]
  - OCCULT BLOOD POSITIVE [None]
